FAERS Safety Report 17801671 (Version 5)
Quarter: 2020Q3

REPORT INFORMATION
  Report Type: Report from Study
  Country: US (occurrence: US)
  Receive Date: 20200519
  Receipt Date: 20200715
  Transmission Date: 20201102
  Serious: Yes (Hospitalization, Other)
  Sender: FDA-Public Use
  Company Number: US-BRISTOL-MYERS SQUIBB COMPANY-BMS-2020-038184

PATIENT
  Age: 67 Year
  Sex: Male
  Weight: 132.38 kg

DRUGS (11)
  1. CLOBETASOL PROPIONATE. [Concomitant]
     Active Substance: CLOBETASOL PROPIONATE
     Indication: ECZEMA
     Dosage: 1 DF = 1 APPLICATION BID
     Route: 061
     Dates: start: 20190923
  2. HYDROCORTISON [HYDROCORTISONE] [Concomitant]
     Indication: PRURITUS
     Dosage: 1 DF =1 APPLICATION
     Route: 061
     Dates: start: 20191230
  3. NIVOLUMAB [Suspect]
     Active Substance: NIVOLUMAB
     Indication: RENAL CELL CARCINOMA
     Dosage: 480 MILLIGRAM
     Route: 065
     Dates: start: 20180730, end: 20200709
  4. IPILIMUMAB [Suspect]
     Active Substance: IPILIMUMAB
     Indication: RENAL CELL CARCINOMA
     Dosage: 1 MILLIGRAM/KILOGRAM
     Route: 065
     Dates: start: 20191126, end: 20200709
  5. SODIUM CHLORIDE. [Concomitant]
     Active Substance: SODIUM CHLORIDE
     Indication: PROPHYLAXIS
     Dosage: 0.9 % FLUSH 3 TO 10 ML
     Route: 042
     Dates: start: 20200511
  6. LEVOTHYROXINE SODIUM. [Concomitant]
     Active Substance: LEVOTHYROXINE SODIUM
     Indication: HYPOTHYROIDISM
     Dosage: 125 MICROGRAM
     Route: 048
     Dates: start: 20191003
  7. ACETAMINOPHEN. [Concomitant]
     Active Substance: ACETAMINOPHEN
     Indication: PAIN
     Dosage: UNK
     Route: 048
  8. ATORVASTATIN [Concomitant]
     Active Substance: ATORVASTATIN
     Indication: BLOOD CHOLESTEROL INCREASED
     Dosage: 20 MILLIGRAM
     Route: 048
     Dates: start: 20200415
  9. PREDNISONE. [Concomitant]
     Active Substance: PREDNISONE
     Indication: RASH
     Dosage: 20 MILLIGRAM
     Route: 048
     Dates: start: 20200309
  10. CLOTRIMAZOLE. [Concomitant]
     Active Substance: CLOTRIMAZOLE
     Indication: RASH
     Dosage: I APPI TP BID
     Route: 065
     Dates: start: 20200505
  11. GABAPENTIN. [Concomitant]
     Active Substance: GABAPENTIN
     Indication: PRURITUS
     Dosage: 300 MILLIGRAM
     Route: 048
     Dates: start: 20200218

REACTIONS (1)
  - Gastric ulcer [Recovered/Resolved]

NARRATIVE: CASE EVENT DATE: 20200512
